FAERS Safety Report 9800005 (Version 2)
Quarter: 2015Q3

REPORT INFORMATION
  Report Type: Spontaneous
  Country: US (occurrence: US)
  Receive Date: 20140106
  Receipt Date: 20150806
  Transmission Date: 20151125
  Serious: No
  Sender: FDA-Public Use
  Company Number: US-GILEAD-2010-0030833

PATIENT
  Age: 57 Year
  Sex: Female

DRUGS (17)
  1. TYLENOL PM EXTRA STR [Concomitant]
  2. POTASSIUM [Concomitant]
     Active Substance: POTASSIUM
  3. BABY ASPIRIN [Concomitant]
     Active Substance: ASPIRIN
  4. LETAIRIS [Suspect]
     Active Substance: AMBRISENTAN
     Indication: HIV INFECTION
     Route: 048
     Dates: start: 20100610
  5. KLONOPIN [Concomitant]
     Active Substance: CLONAZEPAM
  6. MULTIVITAMIN [Concomitant]
     Active Substance: VITAMINS
  7. FISH OIL [Concomitant]
     Active Substance: FISH OIL
  8. ACTOPLUS MET [Concomitant]
     Active Substance: METFORMIN HYDROCHLORIDE\PIOGLITAZONE HYDROCHLORIDE
  9. TRICOR [Concomitant]
     Active Substance: FENOFIBRATE
  10. VITAMIN D [Concomitant]
     Active Substance: CHOLECALCIFEROL
  11. FUROSEMIDE. [Concomitant]
     Active Substance: FUROSEMIDE
  12. ALTACE [Concomitant]
     Active Substance: RAMIPRIL
  13. TEMAZEPAM. [Concomitant]
     Active Substance: TEMAZEPAM
  14. FOLIC ACID. [Concomitant]
     Active Substance: FOLIC ACID
  15. CRESTOR [Concomitant]
     Active Substance: ROSUVASTATIN CALCIUM
  16. PARACETAMOL/HYDROCODONE BITARTRATE [Concomitant]
  17. MC CONTIN [Concomitant]

REACTIONS (2)
  - Oedema [Not Recovered/Not Resolved]
  - Fluid retention [Not Recovered/Not Resolved]

NARRATIVE: CASE EVENT DATE: 201007
